FAERS Safety Report 13515808 (Version 5)
Quarter: 2018Q1

REPORT INFORMATION
  Report Type: Report from Study
  Country: US (occurrence: US)
  Receive Date: 20170504
  Receipt Date: 20180126
  Transmission Date: 20180508
  Serious: Yes (Hospitalization)
  Sender: FDA-Public Use
  Company Number: PHEH2017US013014

PATIENT
  Sex: Male
  Weight: 83.9 kg

DRUGS (4)
  1. GILENYA [Suspect]
     Active Substance: FINGOLIMOD HYDROCHLORIDE
     Indication: MULTIPLE SCLEROSIS
     Dosage: 0.5 MG, QD
     Route: 048
     Dates: start: 20151112
  2. GILENYA [Suspect]
     Active Substance: FINGOLIMOD HYDROCHLORIDE
     Dosage: 0.5 MG, QD
     Route: 048
     Dates: start: 20160617
  3. GILENYA [Suspect]
     Active Substance: FINGOLIMOD HYDROCHLORIDE
     Dosage: 0.5 MG, QOD
     Route: 048
  4. GILENYA [Suspect]
     Active Substance: FINGOLIMOD HYDROCHLORIDE
     Dosage: 0.5 MG, QD
     Route: 048
     Dates: start: 20171001

REACTIONS (15)
  - Cystitis [Recovering/Resolving]
  - Multiple sclerosis relapse [Not Recovered/Not Resolved]
  - Localised infection [Recovered/Resolved]
  - White blood cell count decreased [Unknown]
  - Optic neuritis [Not Recovered/Not Resolved]
  - Prescribed underdose [Unknown]
  - Movement disorder [Recovering/Resolving]
  - Blue toe syndrome [Not Recovered/Not Resolved]
  - Oedema peripheral [Not Recovered/Not Resolved]
  - Immunosuppression [Unknown]
  - Contusion [Recovering/Resolving]
  - Fall [Unknown]
  - Pyrexia [Recovering/Resolving]
  - Localised infection [Not Recovered/Not Resolved]
  - Eye infection [Not Recovered/Not Resolved]
